FAERS Safety Report 22284730 (Version 3)
Quarter: 2025Q2

REPORT INFORMATION
  Report Type: Report from Study
  Country: US (occurrence: US)
  Receive Date: 20230504
  Receipt Date: 20250417
  Transmission Date: 20250717
  Serious: No
  Sender: ASTELLAS
  Company Number: US-ASTELLAS-2023US013729

PATIENT
  Age: 81 Year
  Sex: Male

DRUGS (1)
  1. ENZALUTAMIDE [Suspect]
     Active Substance: ENZALUTAMIDE
     Indication: Product used for unknown indication
     Route: 065
     Dates: start: 20230427

REACTIONS (8)
  - Fall [Unknown]
  - Muscular weakness [Unknown]
  - Muscle atrophy [Unknown]
  - Osteoporosis [Unknown]
  - Confusional state [Unknown]
  - Disturbance in attention [Unknown]
  - Amnesia [Unknown]
  - Visual impairment [Unknown]

NARRATIVE: CASE EVENT DATE: 20231101
